FAERS Safety Report 19225323 (Version 2)
Quarter: 2021Q4

REPORT INFORMATION
  Report Type: Report from Study
  Country: US (occurrence: None)
  Receive Date: 20210505
  Receipt Date: 20211116
  Transmission Date: 20220303
  Serious: Yes (Hospitalization, Other)
  Sender: FDA-Public Use
  Company Number: US-MERCK HEALTHCARE KGAA-9235442

PATIENT
  Sex: Female

DRUGS (2)
  1. REBIF [Suspect]
     Active Substance: INTERFERON BETA-1A
     Indication: Product used for unknown indication
     Route: 058
     Dates: start: 20130417
  2. MOTRIN [Suspect]
     Active Substance: IBUPROFEN
     Indication: Pain

REACTIONS (6)
  - Pain [Unknown]
  - Rectal haemorrhage [Recovered/Resolved]
  - Feeling abnormal [Unknown]
  - Head discomfort [Unknown]
  - Influenza like illness [Not Recovered/Not Resolved]
  - Pruritus [Unknown]
